FAERS Safety Report 20775867 (Version 2)
Quarter: 2022Q2

REPORT INFORMATION
  Report Type: Report from Study
  Country: MX (occurrence: MX)
  Receive Date: 20220502
  Receipt Date: 20220513
  Transmission Date: 20220720
  Serious: Yes (Life-Threatening, Other)
  Sender: FDA-Public Use
  Company Number: MX-NOVARTISPH-NVSC2022MX038390

PATIENT
  Age: 71 Year
  Sex: Female
  Weight: 50 kg

DRUGS (8)
  1. ENTRESTO [Suspect]
     Active Substance: SACUBITRIL\VALSARTAN
     Indication: Hypertension
     Dosage: 0.5 DOSAGE FORM, BID, 50 MG, (EVERY 12 HOURS)
     Route: 048
     Dates: start: 20220125, end: 20220208
  2. ENTRESTO [Suspect]
     Active Substance: SACUBITRIL\VALSARTAN
     Indication: Mitral valve disease
     Dosage: 1.5 DOSAGE FORM, (AT 7 AM TAKES ONE TAB, AT 7PM TAKES HALF A TAB)
     Route: 048
     Dates: start: 20220126
  3. ENTRESTO [Suspect]
     Active Substance: SACUBITRIL\VALSARTAN
     Dosage: UNK
     Route: 048
     Dates: start: 20220129
  4. ENTRESTO [Suspect]
     Active Substance: SACUBITRIL\VALSARTAN
     Dosage: UNK, (1 TABLET OF 100MG IN THE MORNING AND ? TABLET OF 100MG AT NIGHT/ 50 MG 2 TABLETS IN MORNING AN
     Route: 048
     Dates: start: 20220208
  5. ENTRESTO [Suspect]
     Active Substance: SACUBITRIL\VALSARTAN
     Dosage: UNK
     Route: 065
  6. SPIRONOLACTONE [Concomitant]
     Active Substance: SPIRONOLACTONE
     Indication: Hypertension
     Dosage: 0.5 DOSAGE FORM, QD
     Route: 048
     Dates: start: 202002
  7. ALPRAZOLAM [Concomitant]
     Active Substance: ALPRAZOLAM
     Indication: Anxiety
     Dosage: 0.25 DOSAGE FORM, QD, (MANY YEARS AGO)
     Route: 048
  8. NORVASC [Concomitant]
     Active Substance: AMLODIPINE BESYLATE
     Indication: Hypertension
     Dosage: 0.25 DOSAGE FORM, QD
     Route: 065
     Dates: start: 20220125

REACTIONS (20)
  - Feeling abnormal [Recovered/Resolved]
  - Urinary tract infection staphylococcal [Recovering/Resolving]
  - Anxiety [Not Recovered/Not Resolved]
  - Tachycardia [Unknown]
  - Heart rate abnormal [Unknown]
  - Anger [Unknown]
  - Fall [Unknown]
  - Weight decreased [Not Recovered/Not Resolved]
  - Arthralgia [Unknown]
  - Thermal burn [Unknown]
  - Somnolence [Unknown]
  - Laziness [Unknown]
  - Headache [Recovered/Resolved]
  - Headache [Recovered/Resolved]
  - Decreased appetite [Not Recovered/Not Resolved]
  - Fatigue [Unknown]
  - Blood pressure decreased [Not Recovered/Not Resolved]
  - Headache [Unknown]
  - Product use in unapproved indication [Unknown]
  - Wrong technique in product usage process [Unknown]

NARRATIVE: CASE EVENT DATE: 20220126
